FAERS Safety Report 20317576 (Version 1)
Quarter: 2022Q1

REPORT INFORMATION
  Report Type: Spontaneous
  Country: US (occurrence: None)
  Receive Date: 20220110
  Receipt Date: 20220110
  Transmission Date: 20220423
  Serious: Yes (Hospitalization)
  Sender: FDA-Public Use
  Company Number: None

PATIENT
  Age: 31 Year
  Sex: Female
  Weight: 107.5 kg

DRUGS (4)
  1. METHOTREXATE [Suspect]
     Active Substance: METHOTREXATE
     Dates: end: 20220103
  2. ONCASPAR [Suspect]
     Active Substance: PEGASPARGASE
     Dosage: OTHER QUANTITY : 3750 UNIT;?
     Dates: end: 20220101
  3. RITUXIMAB [Suspect]
     Active Substance: RITUXIMAB
     Dates: end: 20211230
  4. VINCRISTINE SULFATE [Suspect]
     Active Substance: VINCRISTINE SULFATE
     Dates: end: 20211230

REACTIONS (10)
  - Oral pain [None]
  - Mouth swelling [None]
  - Hyperactive pharyngeal reflex [None]
  - Haemoptysis [None]
  - Nausea [None]
  - Pyrexia [None]
  - Oropharyngeal pain [None]
  - Oral mucosal erythema [None]
  - Lip dry [None]
  - Lip oedema [None]

NARRATIVE: CASE EVENT DATE: 20211203
